FAERS Safety Report 24883030 (Version 2)
Quarter: 2025Q1

REPORT INFORMATION
  Report Type: Spontaneous
  Country: US (occurrence: US)
  Receive Date: 20250124
  Receipt Date: 20250309
  Transmission Date: 20250409
  Serious: Yes (Other)
  Sender: ALEXION PHARMACEUTICALS
  Company Number: US-ASTRAZENECA-202501GLO017291US

PATIENT
  Age: 52 Year
  Weight: 99.8 kg

DRUGS (31)
  1. CRESTOR [Suspect]
     Active Substance: ROSUVASTATIN CALCIUM
  2. ENBREL [Suspect]
     Active Substance: ETANERCEPT
     Indication: Rheumatoid arthritis
  3. ENBREL [Suspect]
     Active Substance: ETANERCEPT
  4. PREDNISONE [Suspect]
     Active Substance: PREDNISONE
     Route: 065
  5. PROTONIX [Suspect]
     Active Substance: PANTOPRAZOLE SODIUM
  6. ZOLOFT [Suspect]
     Active Substance: SERTRALINE HYDROCHLORIDE
  7. HYDROXYCHLOROQUINE SULFATE [Suspect]
     Active Substance: HYDROXYCHLOROQUINE SULFATE
  8. FLOMAX [Suspect]
     Active Substance: TAMSULOSIN HYDROCHLORIDE
  9. GEMTESA [Suspect]
     Active Substance: VIBEGRON
  10. LOFIBRA [Suspect]
     Active Substance: FENOFIBRATE
  11. ALPHAGAN P [Suspect]
     Active Substance: BRIMONIDINE TARTRATE
  12. ELIQUIS [Suspect]
     Active Substance: APIXABAN
  13. COZAAR [Suspect]
     Active Substance: LOSARTAN POTASSIUM
  14. ZYLOPRIM [Suspect]
     Active Substance: ALLOPURINOL
     Indication: Blood uric acid increased
  15. ZYLOPRIM [Suspect]
     Active Substance: ALLOPURINOL
     Indication: Nephrolithiasis
  16. ZYLOPRIM [Suspect]
     Active Substance: ALLOPURINOL
     Indication: Gout
  17. FLEXERIL [Suspect]
     Active Substance: CYCLOBENZAPRINE HYDROCHLORIDE
     Indication: Muscle spasms
     Dosage: 10 MILLIGRAM, TID
  18. FLEXERIL [Suspect]
     Active Substance: CYCLOBENZAPRINE HYDROCHLORIDE
     Indication: Pain
  19. FLEXERIL [Suspect]
     Active Substance: CYCLOBENZAPRINE HYDROCHLORIDE
     Indication: Back pain
  20. LASIX [Suspect]
     Active Substance: FUROSEMIDE
  21. PROBIOTICS NOS [Suspect]
     Active Substance: PROBIOTICS NOS
  22. NITROSTAT [Suspect]
     Active Substance: NITROGLYCERIN
     Indication: Chest pain
  23. FERROUS SULFATE [Suspect]
     Active Substance: FERROUS SULFATE
  24. VITAMIN D [Suspect]
     Active Substance: VITAMIN D NOS
  25. VITAMIN B COMPLEX [Suspect]
     Active Substance: CYANOCOBALAMIN\DEXPANTHENOL\NIACINAMIDE\PYRIDOXINE HYDROCHLORIDE\RIBOFLAVIN 5^-PHOSPHATE SODIUM\THIA
  26. LORATADINE [Suspect]
     Active Substance: LORATADINE
  27. HUMIRA [Suspect]
     Active Substance: ADALIMUMAB
     Route: 065
  28. METHOTREXATE [Suspect]
     Active Substance: METHOTREXATE
     Route: 065
  29. REMICADE [Suspect]
     Active Substance: INFLIXIMAB
     Route: 065
  30. LEFLUNOMIDE [Suspect]
     Active Substance: LEFLUNOMIDE
     Route: 065
  31. RITUXIMAB [Suspect]
     Active Substance: RITUXIMAB
     Route: 065

REACTIONS (43)
  - Pneumonia [Unknown]
  - Hyperkalaemia [Not Recovered/Not Resolved]
  - Arteriosclerosis coronary artery [Not Recovered/Not Resolved]
  - Sinus node dysfunction [Not Recovered/Not Resolved]
  - Acute kidney injury [Not Recovered/Not Resolved]
  - Heart failure with preserved ejection fraction [Not Recovered/Not Resolved]
  - Atrial fibrillation [Not Recovered/Not Resolved]
  - Blood loss anaemia [Not Recovered/Not Resolved]
  - Gastrointestinal haemorrhage [Not Recovered/Not Resolved]
  - Peptic ulcer haemorrhage [Not Recovered/Not Resolved]
  - Thoracic vertebral fracture [Not Recovered/Not Resolved]
  - Toe amputation [Unknown]
  - Knee arthroplasty [Unknown]
  - Shoulder arthroplasty [Unknown]
  - Infection [Unknown]
  - Red blood cell count decreased [Unknown]
  - Haemoglobin decreased [Unknown]
  - Haematocrit decreased [Unknown]
  - Blood chloride increased [Unknown]
  - Blood bicarbonate decreased [Unknown]
  - Blood glucose increased [Unknown]
  - Blood urea increased [Unknown]
  - Blood creatinine increased [Unknown]
  - Glomerular filtration rate decreased [Unknown]
  - Aspartate aminotransferase increased [Unknown]
  - Rotator cuff tear arthropathy [Not Recovered/Not Resolved]
  - Therapeutic response shortened [Unknown]
  - Back pain [Not Recovered/Not Resolved]
  - Osteoarthritis [Not Recovered/Not Resolved]
  - Intervertebral disc protrusion [Not Recovered/Not Resolved]
  - Anxiety [Not Recovered/Not Resolved]
  - Foot deformity [Unknown]
  - Foot deformity [Not Recovered/Not Resolved]
  - Periarthritis [Not Recovered/Not Resolved]
  - Joint contracture [Not Recovered/Not Resolved]
  - Hypomagnesaemia [Not Recovered/Not Resolved]
  - Urinary tract infection [Not Recovered/Not Resolved]
  - Normocytic anaemia [Not Recovered/Not Resolved]
  - Pain [Not Recovered/Not Resolved]
  - Tendinous contracture [Not Recovered/Not Resolved]
  - Therapy interrupted [Unknown]
  - Off label use [Unknown]
  - Musculoskeletal discomfort [Unknown]
